FAERS Safety Report 8008806-7 (Version None)
Quarter: 2011Q4

REPORT INFORMATION
  Report Type: 
  Country: None (occurrence: None)
  Receive Date: 20111227
  Receipt Date: 20111221
  Transmission Date: 20120403
  Serious: Yes (Other)
  Sender: FDA-Public Use
  Company Number: PHEH2011US012246

PATIENT
  Sex: Female

DRUGS (1)
  1. RECLAST [Suspect]
     Dosage: UNK UKN, UNK
     Route: 042
     Dates: start: 20111001

REACTIONS (4)
  - HAEMOGLOBIN DECREASED [None]
  - BACK PAIN [None]
  - HAEMOLYTIC ANAEMIA [None]
  - HAEMOLYSIS [None]
